FAERS Safety Report 21142516 (Version 2)
Quarter: 2022Q3

REPORT INFORMATION
  Report Type: Spontaneous
  Country: DE (occurrence: DE)
  Receive Date: 20220728
  Receipt Date: 20220810
  Transmission Date: 20221027
  Serious: Yes (Other)
  Sender: FDA-Public Use
  Company Number: DE-SANOFI-01204329

PATIENT
  Age: 56 Year
  Sex: Female

DRUGS (6)
  1. DUPIXENT [Suspect]
     Active Substance: DUPILUMAB
     Indication: Chronic rhinosinusitis with nasal polyps
     Dosage: 300 MG, Q4W
     Route: 065
     Dates: start: 20190512, end: 2019
  2. DUPIXENT [Suspect]
     Active Substance: DUPILUMAB
     Dosage: 300 MG, Q4W
     Dates: start: 2020
  3. XOLAIR [Concomitant]
     Active Substance: OMALIZUMAB
  4. CORTISONE [Concomitant]
     Active Substance: CORTISONE
     Indication: Headache
     Dosage: UNK
     Dates: start: 2019
  5. CORTISONE [Concomitant]
     Active Substance: CORTISONE
     Indication: Head discomfort
  6. CORTISONE [Concomitant]
     Active Substance: CORTISONE
     Indication: Glioblastoma

REACTIONS (6)
  - Glioblastoma [Recovered/Resolved]
  - Intracranial pressure increased [Recovered/Resolved]
  - Nervous system disorder [Recovered/Resolved]
  - Nasal polyps [Recovering/Resolving]
  - Inappropriate schedule of product administration [Unknown]
  - Therapeutic response unexpected [Unknown]

NARRATIVE: CASE EVENT DATE: 20190501
